FAERS Safety Report 15787453 (Version 1)
Quarter: 2019Q1

REPORT INFORMATION
  Report Type: Spontaneous
  Country: US (occurrence: US)
  Receive Date: 20190103
  Receipt Date: 20190103
  Transmission Date: 20190417
  Serious: No
  Sender: FDA-Public Use
  Company Number: US-MYLANLABS-2018M1091652

PATIENT
  Sex: Female
  Weight: 68 kg

DRUGS (9)
  1. POTASSIUM [Concomitant]
     Active Substance: POTASSIUM
     Dosage: UNK
  2. COUMADIN [Concomitant]
     Active Substance: WARFARIN SODIUM
     Dosage: UNK
  3. SYNTHROID [Concomitant]
     Active Substance: LEVOTHYROXINE SODIUM
     Dosage: UNK
  4. VALSARTAN TABLETS, USP [Suspect]
     Active Substance: VALSARTAN
     Indication: HYPERTENSION
     Dosage: UNK
  5. MAGNESIUM [Concomitant]
     Active Substance: MAGNESIUM
     Dosage: UNK
  6. OLMESARTAN [Concomitant]
     Active Substance: OLMESARTAN
     Dosage: UNK
  7. COREG [Concomitant]
     Active Substance: CARVEDILOL
     Dosage: UNK
  8. ASPIRIN                            /00002701/ [Concomitant]
     Active Substance: ASPIRIN
     Dosage: UNK
  9. LASIX [Concomitant]
     Active Substance: FUROSEMIDE
     Dosage: UNK

REACTIONS (2)
  - Abdominal discomfort [Unknown]
  - Diarrhoea [Not Recovered/Not Resolved]
